FAERS Safety Report 11301728 (Version 1)
Quarter: 2015Q3

REPORT INFORMATION
  Report Type: Spontaneous
  Country: US (occurrence: US)
  Receive Date: 20150722
  Receipt Date: 20150722
  Transmission Date: 20151125
  Serious: No
  Sender: FDA-Public Use
  Company Number: US-ELI_LILLY_AND_COMPANY-US200904000979

PATIENT
  Sex: Female

DRUGS (1)
  1. HUMATROPE [Suspect]
     Active Substance: SOMATROPIN

REACTIONS (7)
  - Visual acuity reduced [Unknown]
  - Anxiety [Unknown]
  - Stress [Unknown]
  - Malaise [Recovered/Resolved]
  - Feeling abnormal [Unknown]
  - Irritability [Unknown]
  - Tension [Unknown]

NARRATIVE: CASE EVENT DATE: 20090401
